FAERS Safety Report 4451912-4 (Version None)
Quarter: 2004Q3

REPORT INFORMATION
  Report Type: 
  Country: None (occurrence: None)
  Receive Date: 20040917
  Receipt Date: 20040907
  Transmission Date: 20050211
  Serious: Yes (Death, Hospitalization)
  Sender: FDA-Public Use
  Company Number: EMADSS2002007644

PATIENT
  Sex: Female

DRUGS (11)
  1. REMICADE [Suspect]
     Route: 041
     Dates: start: 20020906
  2. REMICADE [Suspect]
     Route: 041
     Dates: start: 20020906
  3. REMICADE [Suspect]
     Indication: RHEUMATOID ARTHRITIS
     Route: 041
     Dates: start: 20020906
  4. AZATHIOPRINE [Concomitant]
     Indication: DRUG USE FOR UNKNOWN INDICATION
     Route: 065
  5. PREDNISOLONE [Concomitant]
     Indication: RHEUMATOID ARTHRITIS
     Route: 049
  6. CO-AMILOFRUSE [Concomitant]
     Route: 049
  7. CO-AMILOFRUSE [Concomitant]
     Indication: DRUG USE FOR UNKNOWN INDICATION
     Route: 049
  8. SOTALOL HCL [Concomitant]
     Indication: DRUG USE FOR UNKNOWN INDICATION
     Route: 049
  9. FOSAMAX [Concomitant]
     Indication: OSTEOPOROSIS
     Route: 049
  10. CO-PROXAMOL [Concomitant]
  11. CO-PROXAMOL [Concomitant]

REACTIONS (6)
  - ALVEOLITIS [None]
  - BRONCHIECTASIS [None]
  - PNEUMOCYSTIS CARINII INFECTION [None]
  - PULMONARY FIBROSIS [None]
  - RESPIRATORY FAILURE [None]
  - THERAPY NON-RESPONDER [None]
